FAERS Safety Report 16748885 (Version 2)
Quarter: 2019Q4

REPORT INFORMATION
  Report Type: Spontaneous
  Country: US (occurrence: US)
  Receive Date: 20190828
  Receipt Date: 20191023
  Transmission Date: 20200122
  Serious: No
  Sender: FDA-Public Use
  Company Number: US-GLAXOSMITHKLINE-US2019AMR152009

PATIENT
  Age: 68 Year
  Sex: Female

DRUGS (3)
  1. FLOVENT DISKUS [Suspect]
     Active Substance: FLUTICASONE PROPIONATE
     Indication: CHRONIC OBSTRUCTIVE PULMONARY DISEASE
     Dosage: 2 PUFF(S), BID
     Route: 065
  2. FLOVENT DISKUS [Suspect]
     Active Substance: FLUTICASONE PROPIONATE
     Dosage: UNK
     Route: 065
  3. FLOVENT DISKUS [Suspect]
     Active Substance: FLUTICASONE PROPIONATE
     Dosage: UNK
     Route: 065

REACTIONS (7)
  - Wrong technique in device usage process [Unknown]
  - Wrong technique in product usage process [Unknown]
  - Product use in unapproved indication [Unknown]
  - Incorrect dose administered [Unknown]
  - Chronic obstructive pulmonary disease [Recovered/Resolved]
  - Device issue [Unknown]
  - Product storage error [Unknown]

NARRATIVE: CASE EVENT DATE: 201907
